FAERS Safety Report 20918616 (Version 1)
Quarter: 2022Q2

REPORT INFORMATION
  Report Type: Spontaneous
  Country: US (occurrence: US)
  Receive Date: 20220606
  Receipt Date: 20220606
  Transmission Date: 20220721
  Serious: No
  Sender: FDA-Public Use
  Company Number: US-AstraZeneca-2021A762941

PATIENT

DRUGS (1)
  1. ZOLADEX [Suspect]
     Active Substance: GOSERELIN ACETATE
     Indication: Product used for unknown indication
     Dosage: 3.6MG UNKNOWN
     Route: 058

REACTIONS (3)
  - Ovulation disorder [Unknown]
  - Menstrual disorder [Unknown]
  - Drug ineffective [Unknown]
